FAERS Safety Report 9460772 (Version 2)
Quarter: 2013Q3

REPORT INFORMATION
  Report Type: Spontaneous
  Country: CN (occurrence: CN)
  Receive Date: 20130815
  Receipt Date: 20130909
  Transmission Date: 20140515
  Serious: Yes (Hospitalization, Other)
  Sender: FDA-Public Use
  Company Number: CN-B.I. PHARMACEUTICALS,INC./RIDGEFIELD-2013-BI-24550YA

PATIENT
  Age: 40 Year
  Sex: Female

DRUGS (3)
  1. HARNAL [Suspect]
     Indication: NEPHROLITHIASIS
     Dosage: 0.2 MG
     Route: 048
     Dates: start: 20130803, end: 20130803
  2. HARNAL [Suspect]
     Indication: LITHOTRIPSY
  3. HUPOXIAOSHIKELI (HERBAL EXTRACT) [Concomitant]
     Dates: start: 20130803

REACTIONS (3)
  - Papule [Recovered/Resolved]
  - Generalised erythema [Recovered/Resolved]
  - Off label use [Recovered/Resolved]
